FAERS Safety Report 5913104-9 (Version None)
Quarter: 2008Q4

REPORT INFORMATION
  Report Type: 
  Country: None (occurrence: None)
  Receive Date: 20081008
  Receipt Date: 20081008
  Transmission Date: 20090506
  Serious: No
  Sender: FDA-Public Use
  Company Number: None

PATIENT
  Sex: Female

DRUGS (1)
  1. ESTRADIOL AND NORETHINDRONE ACETATE [Suspect]
     Indication: HORMONE REPLACEMENT THERAPY
     Dosage: 1.0 MG/0.5 MG DAILY ORALLY
     Route: 048

REACTIONS (3)
  - HAEMORRHAGE [None]
  - MUSCLE SPASMS [None]
  - PRODUCT QUALITY ISSUE [None]
